FAERS Safety Report 13880529 (Version 1)
Quarter: 2017Q3

REPORT INFORMATION
  Report Type: Spontaneous
  Country: CA (occurrence: CA)
  Receive Date: 20170818
  Receipt Date: 20170818
  Transmission Date: 20171127
  Serious: Yes (Hospitalization, Other)
  Sender: FDA-Public Use
  Company Number: CA-PFIZER INC-2017358342

PATIENT
  Age: 70 Year
  Sex: Female

DRUGS (1)
  1. METHOTREXATE SODIUM. [Suspect]
     Active Substance: METHOTREXATE SODIUM
     Indication: RHEUMATOID ARTHRITIS

REACTIONS (6)
  - White blood cell count decreased [Unknown]
  - Renal failure [Recovering/Resolving]
  - Bone marrow disorder [Unknown]
  - Platelet count decreased [Unknown]
  - Hepatomegaly [Unknown]
  - Red blood cell count decreased [Unknown]
